FAERS Safety Report 12099877 (Version 1)
Quarter: 2016Q1

REPORT INFORMATION
  Report Type: Spontaneous
  Country: FR (occurrence: FR)
  Receive Date: 20160222
  Receipt Date: 20160222
  Transmission Date: 20160526
  Serious: Yes (Hospitalization, Other)
  Sender: FDA-Public Use
  Company Number: FR-PFIZER INC-2016089453

PATIENT
  Age: 68 Year
  Sex: Female

DRUGS (19)
  1. CONTRAMAL [Concomitant]
     Active Substance: TRAMADOL HYDROCHLORIDE
     Dosage: UNK
  2. CRESTOR [Concomitant]
     Active Substance: ROSUVASTATIN CALCIUM
     Dosage: UNK
  3. UN-ALPHA [Concomitant]
     Dosage: UNK
  4. CALCIPARINE [Concomitant]
     Active Substance: HEPARIN CALCIUM
     Dosage: UNK
  5. LERCAN [Concomitant]
     Active Substance: LERCANIDIPINE
     Dosage: UNK
  6. KARDEGIC [Concomitant]
     Active Substance: ASPIRIN LYSINE
     Dosage: UNK
  7. ATARAX [Concomitant]
     Active Substance: HYDROXYZINE\HYDROXYZINE HYDROCHLORIDE
     Dosage: UNK
  8. DOLIPRANE [Concomitant]
     Active Substance: ACETAMINOPHEN
     Dosage: UNK
  9. CALCIDIA [Concomitant]
     Active Substance: CALCIUM POLYCARBOPHIL
     Dosage: UNK
  10. DALACINE [Suspect]
     Active Substance: CLINDAMYCIN HYDROCHLORIDE
     Indication: OSTEOARTHRITIS
     Dosage: 600 MG, 4X/DAY
     Route: 048
     Dates: start: 20160106, end: 20160126
  11. AMLOR [Concomitant]
     Active Substance: AMLODIPINE BESYLATE
     Dosage: UNK
  12. RAMIPRIL. [Concomitant]
     Active Substance: RAMIPRIL
     Dosage: UNK
  13. FUCIDINE /00065701/ [Suspect]
     Active Substance: FUSIDIC ACID
     Indication: OSTEOARTHRITIS
     Dosage: 500 MG, 3X/DAY
     Route: 048
     Dates: start: 20160106, end: 20160126
  14. SECTRAL [Concomitant]
     Active Substance: ACEBUTOLOL HYDROCHLORIDE
     Dosage: UNK
  15. LASILIX /00032601/ [Concomitant]
     Active Substance: FUROSEMIDE
     Dosage: UNK
  16. CEFEPIME [Suspect]
     Active Substance: CEFEPIME HYDROCHLORIDE
     Indication: OSTEOARTHRITIS
     Dosage: 1 G, 1X/DAY
     Route: 042
     Dates: start: 20160106, end: 20160126
  17. EUPRESSYL /00631801/ [Concomitant]
     Active Substance: URAPIDIL
     Dosage: UNK
  18. GALVUS [Concomitant]
     Active Substance: VILDAGLIPTIN
     Dosage: UNK
  19. REPAGLINIDE. [Concomitant]
     Active Substance: REPAGLINIDE
     Dosage: UNK

REACTIONS (4)
  - Acute kidney injury [Not Recovered/Not Resolved]
  - Rash morbilliform [Recovered/Resolved]
  - Thrombocytopenia [Recovering/Resolving]
  - Anaemia [Not Recovered/Not Resolved]

NARRATIVE: CASE EVENT DATE: 20160109
